FAERS Safety Report 6460375-9 (Version None)
Quarter: 2009Q4

REPORT INFORMATION
  Report Type: 
  Country: None (occurrence: None)
  Receive Date: 20091130
  Receipt Date: 20091119
  Transmission Date: 20100525
  Serious: Yes (Other)
  Sender: FDA-Public Use
  Company Number: US-JNJFOC-20090803625

PATIENT
  Sex: Female
  Weight: 84.82 kg

DRUGS (13)
  1. REMICADE [Suspect]
     Indication: ARTHRITIS
     Route: 042
     Dates: start: 20080401
  2. REMICADE [Suspect]
     Indication: ANKYLOSING SPONDYLITIS
     Route: 042
     Dates: start: 20080401
  3. REMICADE [Suspect]
     Indication: CROHN'S DISEASE
     Route: 042
     Dates: start: 20080401
  4. ESTRACE [Concomitant]
     Indication: HORMONE REPLACEMENT THERAPY
  5. SYNTHROID [Concomitant]
     Indication: HYPOTHYROIDISM
  6. MAXZIDE [Concomitant]
  7. AVAPRO [Concomitant]
     Indication: HYPERTENSION
  8. PROTONIX [Concomitant]
     Indication: GASTRIC ULCER
  9. METHOTREXATE [Concomitant]
     Indication: ARTHRITIS
  10. CELEBREX [Concomitant]
     Indication: ARTHRALGIA
  11. TRAMADOL HCL [Concomitant]
     Indication: PAIN
  12. FOLIC ACID [Concomitant]
  13. TYLENOL (CAPLET) [Concomitant]

REACTIONS (2)
  - HERPES ZOSTER [None]
  - HERPES ZOSTER OPHTHALMIC [None]
